FAERS Safety Report 15164552 (Version 3)
Quarter: 2018Q3

REPORT INFORMATION
  Report Type: Report from Study
  Country: US (occurrence: US)
  Receive Date: 20180719
  Receipt Date: 20180911
  Transmission Date: 20181010
  Serious: Yes (Other)
  Sender: FDA-Public Use
  Company Number: PHEH2018US029848

PATIENT
  Age: 38 Year
  Sex: Female
  Weight: 97.51 kg

DRUGS (1)
  1. GLATOPA [Suspect]
     Active Substance: GLATIRAMER ACETATE
     Indication: MULTIPLE SCLEROSIS
     Dosage: 20 MG, QD, ROTATES INJECTION SITE
     Route: 058
     Dates: start: 20180619

REACTIONS (8)
  - Nasal congestion [Recovered/Resolved]
  - Hot flush [Recovered/Resolved]
  - Injection site reaction [Unknown]
  - Dyspnoea [Recovered/Resolved]
  - Tremor [Recovered/Resolved]
  - Feeling cold [Recovered/Resolved]
  - Headache [Not Recovered/Not Resolved]
  - Rash pruritic [Not Recovered/Not Resolved]

NARRATIVE: CASE EVENT DATE: 20180626
